FAERS Safety Report 15785515 (Version 1)
Quarter: 2019Q1

REPORT INFORMATION
  Report Type: Spontaneous
  Country: US (occurrence: US)
  Receive Date: 20190101
  Receipt Date: 20190101
  Transmission Date: 20190417
  Serious: Yes (Other)
  Sender: FDA-Public Use
  Company Number: None

PATIENT
  Age: 31 Year
  Sex: Male
  Weight: 72 kg

DRUGS (10)
  1. EPIDIOLEX [Concomitant]
     Active Substance: CANNABIDIOL
  2. CLOBAZAM, GENERIC [Suspect]
     Active Substance: CLOBAZAM
     Indication: EPILEPSY
     Dosage: ?          QUANTITY:60 TABLET(S);?
     Route: 048
  3. FLONAISE [Concomitant]
  4. ALBUTEROL. [Concomitant]
     Active Substance: ALBUTEROL
  5. ONFI [Concomitant]
     Active Substance: CLOBAZAM
  6. CLARITIN [Concomitant]
     Active Substance: LORATADINE
  7. MULTI-VITAMIN [Concomitant]
     Active Substance: .ALPHA.-TOCOPHEROL ACETATE, DL-\ASCORBIC ACID\CYANOCOBALAMIN\FLUORIDE ION\FOLIC ACID\NIACIN\PYRIDOXINE\RIBOFLAVIN\THIAMINE\VITAMIN A\VITAMIN D
  8. VIMPAT [Concomitant]
     Active Substance: LACOSAMIDE
  9. PHENOBARBITAL. [Concomitant]
     Active Substance: PHENOBARBITAL
  10. OMEPRAZOLE. [Concomitant]
     Active Substance: OMEPRAZOLE

REACTIONS (4)
  - Treatment failure [None]
  - Product substitution issue [None]
  - Lethargy [None]
  - Urinary retention [None]

NARRATIVE: CASE EVENT DATE: 20181231
